FAERS Safety Report 17650775 (Version 1)
Quarter: 2020Q2

REPORT INFORMATION
  Report Type: Report from Study
  Country: JP (occurrence: JP)
  Receive Date: 20200409
  Receipt Date: 20200409
  Transmission Date: 20200713
  Serious: Yes (Other)
  Sender: FDA-Public Use
  Company Number: JP-CHEPLA-C20201234

PATIENT
  Age: 17 Year
  Sex: Male
  Weight: 43 kg

DRUGS (9)
  1. LETERMOVIR [Suspect]
     Active Substance: LETERMOVIR
     Indication: ANTIVIRAL PROPHYLAXIS
     Dosage: 480 MILLIGRAM, QD
     Route: 048
     Dates: start: 20191126, end: 20191215
  2. TACROLIMUS HYDRATE [Suspect]
     Active Substance: TACROLIMUS
     Indication: IMMUNOSUPPRESSION
     Route: 065
     Dates: start: 20191124
  3. ETOPOSIDE. [Suspect]
     Active Substance: ETOPOSIDE
     Indication: BONE MARROW CONDITIONING REGIMEN
     Route: 065
     Dates: start: 20190308
  4. DENOSINE (GANCICLOVIR) [Suspect]
     Active Substance: GANCICLOVIR
     Indication: CYTOMEGALOVIRUS INFECTION
     Dosage: 200 MG A DAY
     Route: 065
     Dates: start: 20191214, end: 20200104
  5. CYCLOPHOSPHAMIDE. [Suspect]
     Active Substance: CYCLOPHOSPHAMIDE
     Route: 065
     Dates: start: 20190308
  6. TENORMIN [Suspect]
     Active Substance: ATENOLOL
     Route: 065
     Dates: start: 20200208
  7. PROGRAF [Suspect]
     Active Substance: TACROLIMUS
     Dosage: 0.9 MILLIGRAM, QD
     Route: 042
     Dates: start: 20191125, end: 20200106
  8. DENOSINE (GANCICLOVIR) [Suspect]
     Active Substance: GANCICLOVIR
     Indication: CYTOMEGALOVIRUS INFECTION
     Dosage: 200 MG A DAY
     Route: 065
     Dates: start: 20200208, end: 20200304
  9. TENORMIN [Suspect]
     Active Substance: ATENOLOL
     Route: 065
     Dates: start: 20191214, end: 20200104

REACTIONS (4)
  - Bone marrow failure [Recovered/Resolved]
  - Product use in unapproved indication [Unknown]
  - Cytomegalovirus test positive [Recovered/Resolved]
  - Oral disorder [Recovered/Resolved]

NARRATIVE: CASE EVENT DATE: 20191213
